FAERS Safety Report 8559907-6 (Version None)
Quarter: 2012Q3

REPORT INFORMATION
  Report Type: 
  Country: None (occurrence: None)
  Receive Date: 20120802
  Receipt Date: 20120727
  Transmission Date: 20120928
  Serious: No
  Sender: FDA-Public Use
  Company Number: PHEH2012US014976

PATIENT
  Sex: Female

DRUGS (4)
  1. LASIX [Concomitant]
  2. TASIGNA [Suspect]
     Indication: CHRONIC MYELOID LEUKAEMIA
     Dosage: 300 MG, BID
     Route: 048
     Dates: start: 20120718
  3. PRILOSEC [Concomitant]
  4. ROLAIDS [Concomitant]

REACTIONS (1)
  - HEADACHE [None]
